FAERS Safety Report 17842316 (Version 1)
Quarter: 2020Q2

REPORT INFORMATION
  Report Type: Spontaneous
  Country: US (occurrence: US)
  Receive Date: 20200529
  Receipt Date: 20200529
  Transmission Date: 20200714
  Serious: Yes (Other)
  Sender: FDA-Public Use
  Company Number: US-NOVOPROD-730151

PATIENT
  Sex: Female

DRUGS (4)
  1. GLUCAGEN HYPOKIT [Suspect]
     Active Substance: GLUCAGON HYDROCHLORIDE
     Indication: PRODUCT USED FOR UNKNOWN INDICATION
     Dosage: UNK
     Route: 058
  2. TRESIBA [Suspect]
     Active Substance: INSULIN DEGLUDEC
     Indication: PRODUCT USED FOR UNKNOWN INDICATION
     Dosage: 60 IU
     Route: 058
  3. TRESIBA [Suspect]
     Active Substance: INSULIN DEGLUDEC
     Dosage: DOSE DECREASED TO 30 IU
     Route: 058
  4. NOVOLOG [Suspect]
     Active Substance: INSULIN ASPART
     Indication: PRODUCT USED FOR UNKNOWN INDICATION
     Dosage: UNK
     Route: 058

REACTIONS (7)
  - Blood glucose increased [Unknown]
  - Blood glucose decreased [Unknown]
  - Visual impairment [Unknown]
  - Ovarian cyst [Unknown]
  - Migraine [Unknown]
  - Anxiety [Unknown]
  - Condition aggravated [Unknown]
